FAERS Safety Report 20771504 (Version 2)
Quarter: 2022Q2

REPORT INFORMATION
  Report Type: Spontaneous
  Country: SE (occurrence: SE)
  Receive Date: 20220430
  Receipt Date: 20220510
  Transmission Date: 20220720
  Serious: Yes (Other)
  Sender: FDA-Public Use
  Company Number: SE-MPA-2022-012724

PATIENT
  Sex: Female
  Weight: 61 kg

DRUGS (2)
  1. SERTRALINE [Suspect]
     Active Substance: SERTRALINE HYDROCHLORIDE
     Indication: Anxiety
     Dosage: UNK
     Route: 065
  2. SERTRALINE [Suspect]
     Active Substance: SERTRALINE HYDROCHLORIDE
     Indication: Depression
     Dosage: 50 MILLIGRAM, ONCE A DAY
     Route: 048
     Dates: start: 20211015

REACTIONS (2)
  - Anembryonic gestation [Unknown]
  - Maternal exposure during pregnancy [Unknown]
